FAERS Safety Report 8592781 (Version 4)
Quarter: 2013Q4

REPORT INFORMATION
  Report Type: Report from Study
  Country: JP (occurrence: JP)
  Receive Date: 20120603
  Receipt Date: 20131203
  Transmission Date: 20140711
  Serious: Yes (Hospitalization)
  Sender: FDA-Public Use
  Company Number: JP-VERTEX PHARMACEUTICALS INC.-AE-2012-007859

PATIENT
  Age: 65 Year
  Sex: Female

DRUGS (9)
  1. VX-950 (TELAPREVIR) [Suspect]
     Indication: CHRONIC HEPATITIS C
     Dosage: 1500 MG, QD
     Route: 048
     Dates: start: 20120421, end: 20120524
  2. PEGINTERFERON ALFA-2B [Suspect]
     Indication: CHRONIC HEPATITIS C
     Dosage: 1.5 ?G/KG, QW
     Route: 058
     Dates: start: 20120425, end: 20120430
  3. PEGINTERFERON ALFA-2B [Suspect]
     Dosage: 0.9 ?G/KG, QW
     Route: 058
     Dates: start: 20120501, end: 20120521
  4. RIBAVIRIN [Suspect]
     Indication: CHRONIC HEPATITIS C
     Dosage: 400 MG, QD
     Route: 048
     Dates: start: 20120425, end: 20120520
  5. RIBAVIRIN [Suspect]
     Dosage: 200 MG, QD
     Route: 048
     Dates: start: 20120521, end: 20120524
  6. URSO [Concomitant]
     Dosage: 600 MG, QD
     Route: 048
     Dates: start: 20120709
  7. BIOFERMIN [Concomitant]
     Dosage: 3 G, QD
     Route: 048
     Dates: start: 20120514
  8. BIOFERMIN [Concomitant]
     Dosage: 3 G, QD
     Route: 048
  9. ZYRTEC [Concomitant]
     Dosage: 10 MG, QD
     Route: 048

REACTIONS (1)
  - Rash [Recovered/Resolved]
